FAERS Safety Report 7458646-2 (Version None)
Quarter: 2011Q2

REPORT INFORMATION
  Report Type: 
  Country: None (occurrence: None)
  Receive Date: 20110504
  Receipt Date: 20110421
  Transmission Date: 20111010
  Serious: Yes (Other)
  Sender: FDA-Public Use
  Company Number: US-CELGENEUS-163-21880-11042846

PATIENT
  Sex: Male
  Weight: 99.88 kg

DRUGS (25)
  1. METOLAZONE [Concomitant]
     Route: 065
  2. MULTI-VITAMINS [Concomitant]
     Route: 065
  3. ZOCOR [Concomitant]
     Route: 065
  4. ZYRTEC [Concomitant]
     Route: 065
  5. CALCIUM WITH VITAMIN D [Concomitant]
     Route: 065
  6. DOCUSATE [Concomitant]
     Route: 065
  7. GLUCOPHAGE [Concomitant]
     Route: 065
  8. MIRALAX [Concomitant]
     Route: 065
  9. LASIX [Concomitant]
     Route: 065
  10. VITAMIN B-12 [Concomitant]
     Route: 065
  11. FOLIC ACID [Concomitant]
     Route: 065
  12. GLUCOTROL [Concomitant]
     Route: 065
  13. POTASSIUM [Concomitant]
     Route: 065
  14. SINGULAIR [Concomitant]
     Route: 065
  15. REVLIMID [Suspect]
     Dosage: 5 MILLIGRAM
     Route: 048
     Dates: start: 20110326, end: 20110416
  16. VITAMIN C [Concomitant]
     Route: 065
  17. COMBIVENT [Concomitant]
     Route: 065
  18. FISH OIL [Concomitant]
     Route: 065
  19. HUMULIN R [Concomitant]
     Route: 065
  20. LANTUS [Concomitant]
     Route: 065
  21. LYRICA [Concomitant]
     Route: 065
  22. PREVACID [Concomitant]
     Route: 065
  23. ALBUTEROL [Concomitant]
     Route: 065
  24. ASPIRIN [Concomitant]
     Route: 065
  25. DULCOLAX [Concomitant]
     Route: 065

REACTIONS (1)
  - HEPATOMEGALY [None]
